FAERS Safety Report 14912519 (Version 1)
Quarter: 2018Q2

REPORT INFORMATION
  Report Type: Report from Study
  Country: US (occurrence: US)
  Receive Date: 20180518
  Receipt Date: 20180518
  Transmission Date: 20180711
  Serious: Yes (Other)
  Sender: FDA-Public Use
  Company Number: US-ROCHE-2125951

PATIENT
  Age: 45 Year
  Sex: Male
  Weight: 48.64 kg

DRUGS (4)
  1. OBINUTUZUMAB. [Suspect]
     Active Substance: OBINUTUZUMAB
     Dosage: DOSE ADMINISTERED 100 MG, LAST CYCLE 1, ?CYCLE 1, DAY 1 OBINUTUZUMAB 100 MG AND CYCLE 1, DAY 2 OBINU
     Route: 042
     Dates: start: 20180111, end: 20180111
  2. OBINUTUZUMAB. [Suspect]
     Active Substance: OBINUTUZUMAB
     Indication: B-CELL LYMPHOMA
     Dosage: DOSE ADMINISTERED 100 MG, LAST CYCLE 1, ?CYCLE 1, DAY 1 OBINUTUZUMAB 100 MG AND CYCLE 1, DAY 2 OBINU
     Route: 042
     Dates: start: 20180110, end: 20180110
  3. VENETOCLAX. [Suspect]
     Active Substance: VENETOCLAX
     Indication: B-CELL LYMPHOMA
     Dosage: ON DAYS 1-10 OF EACH CYCLE, LAST CYCLE: 1
     Route: 048
  4. BENDAMUSTINE [Suspect]
     Active Substance: BENDAMUSTINE
     Indication: B-CELL LYMPHOMA
     Dosage: ON DAYS 1 AND 2 OF EACH CYCLE OVER 15 MINUTES AFTER OBINUTUZUMAB, LAST CYCLE: 1
     Route: 042
     Dates: start: 20180110, end: 20180111

REACTIONS (1)
  - Tumour lysis syndrome [Recovered/Resolved]

NARRATIVE: CASE EVENT DATE: 20180117
